FAERS Safety Report 10405782 (Version 1)
Quarter: 2014Q3

REPORT INFORMATION
  Report Type: Spontaneous
  Country: US (occurrence: None)
  Receive Date: 20140821
  Receipt Date: 20140821
  Transmission Date: 20150326
  Serious: Yes (Life-Threatening)
  Sender: FDA-Public Use
  Company Number: 1713747-2014-999114

PATIENT

DRUGS (6)
  1. COMBISET BLOODLINES [Concomitant]
  2. NATURALYTE [Concomitant]
     Active Substance: ACETIC ACID\SODIUM ACETATE
  3. 0.9% SODIUM CHLORIDE INJECTION [Suspect]
     Active Substance: SODIUM CHLORIDE
     Indication: RENAL FAILURE CHRONIC
     Dosage: HEMODIALYSIS?
     Dates: start: 20140806
  4. GRANUFLO [Concomitant]
     Active Substance: ACETIC ACID\SODIUM ACETATE
  5. FRESENIUS 2008K2 HEMODIALYSIS SYSTEM [Concomitant]
  6. OPTIFLUX DIALYZER [Concomitant]

REACTIONS (1)
  - Unresponsive to stimuli [None]

NARRATIVE: CASE EVENT DATE: 20140806
